FAERS Safety Report 9168651 (Version 1)
Quarter: 2013Q1

REPORT INFORMATION
  Report Type: Spontaneous
  Country: DE (occurrence: DE)
  Receive Date: 20130318
  Receipt Date: 20130318
  Transmission Date: 20140127
  Serious: Yes (Hospitalization, Other)
  Sender: FDA-Public Use
  Company Number: DE-B.I. PHARMACEUTICALS,INC./RIDGEFIELD-2013-DE-00408DE

PATIENT
  Sex: Male
  Weight: 75 kg

DRUGS (6)
  1. PRADAXA [Suspect]
     Indication: ATRIAL FIBRILLATION
     Dosage: 150 MG
     Route: 048
     Dates: start: 20121124, end: 20121217
  2. PRADAXA [Suspect]
     Indication: ARRHYTHMIA
  3. RAMIPRIL [Concomitant]
     Dosage: 5 NR
  4. SIMVASTATIN [Concomitant]
     Dosage: 40 NR
  5. BISOPROLOL [Concomitant]
     Dosage: 5 NR
  6. METFORMIN [Concomitant]
     Dosage: 1700 NR

REACTIONS (2)
  - Traumatic haemorrhage [Recovered/Resolved]
  - Coagulopathy [Recovered/Resolved]
